FAERS Safety Report 8987508 (Version 1)
Quarter: 2012Q4

REPORT INFORMATION
  Report Type: 
  Country: GB (occurrence: GB)
  Receive Date: 20121227
  Receipt Date: 20121227
  Transmission Date: 20130627
  Serious: Yes (Disabling)
  Sender: FDA-Public Use
  Company Number: GB-WATSON-2012-22637

PATIENT
  Age: 58 Year
  Sex: Female
  Weight: 95 kg

DRUGS (9)
  1. ANASTROZOLE [Suspect]
     Indication: PRODUCT USED FOR UNKNOWN INDICATION
     Dosage: UNK, unknown
     Route: 065
     Dates: start: 20121119
  2. SALBUTAMOL [Concomitant]
     Indication: PRODUCT USED FOR UNKNOWN INDICATION
     Dosage: UNK, unknown
     Route: 065
     Dates: start: 20120822, end: 20120919
  3. SALBUTAMOL [Concomitant]
     Dosage: UNK
     Route: 065
     Dates: start: 20121114
  4. SIMVASTATIN [Concomitant]
     Indication: PRODUCT USED FOR UNKNOWN INDICATION
     Dosage: UNK, unknown
     Route: 065
     Dates: start: 20120822
  5. SIMVASTATIN [Concomitant]
     Dosage: UNK
     Route: 065
     Dates: start: 20121114
  6. IRBESARTAN [Concomitant]
     Indication: PRODUCT USED FOR UNKNOWN INDICATION
     Dosage: UNK, unknown
     Route: 065
     Dates: start: 20120822
  7. AMLODIPINE [Concomitant]
     Indication: PRODUCT USED FOR UNKNOWN INDICATION
     Dosage: UNK, unknown
     Route: 065
     Dates: start: 20120822
  8. BENDROFLUMETHIAZIDE [Concomitant]
     Indication: PRODUCT USED FOR UNKNOWN INDICATION
     Dosage: UNK, unknown
     Route: 065
     Dates: start: 20120822
  9. LETROZOLE [Concomitant]
     Indication: PRODUCT USED FOR UNKNOWN INDICATION
     Dosage: UNK, unknown
     Route: 065
     Dates: start: 20120823, end: 20121127

REACTIONS (1)
  - Musculoskeletal pain [Recovered/Resolved]
